FAERS Safety Report 6764839-X (Version None)
Quarter: 2010Q2

REPORT INFORMATION
  Report Type: 
  Country: None (occurrence: None)
  Receive Date: 20100609
  Receipt Date: 20100510
  Transmission Date: 20101027
  Serious: No
  Sender: FDA-Public Use
  Company Number: 2010011655

PATIENT
  Age: 8 Year
  Sex: Male
  Weight: 29.9374 kg

DRUGS (1)
  1. CHILDREN'S ZYRTEC ALLERGY [Suspect]
     Indication: SEASONAL ALLERGY
     Dosage: ONCE A DAY, ORAL
     Route: 048
     Dates: start: 20100503

REACTIONS (3)
  - PRODUCT QUALITY ISSUE [None]
  - RASH [None]
  - URTICARIA [None]
